FAERS Safety Report 12483874 (Version 2)
Quarter: 2016Q3

REPORT INFORMATION
  Report Type: Spontaneous
  Country: JP (occurrence: JP)
  Receive Date: 20160621
  Receipt Date: 20160707
  Transmission Date: 20161109
  Serious: Yes (Other)
  Sender: FDA-Public Use
  Company Number: JP-VIFOR (INTERNATIONAL) INC.-VIT-2016-02766

PATIENT
  Age: 42 Year
  Sex: Male
  Weight: 68 kg

DRUGS (17)
  1. MIRCERA [Suspect]
     Active Substance: METHOXY POLYETHYLENE GLYCOL-EPOETIN BETA
     Route: 042
     Dates: start: 20120806
  2. CALTAN [Concomitant]
     Active Substance: CALCIUM CARBONATE
     Route: 048
     Dates: start: 20121207
  3. NESP [Concomitant]
     Active Substance: DARBEPOETIN ALFA
     Indication: NEPHROGENIC ANAEMIA
     Route: 065
     Dates: end: 201206
  4. OMEPRAL [Concomitant]
     Active Substance: OMEPRAZOLE
     Route: 048
     Dates: start: 201309
  5. MIRCERA [Suspect]
     Active Substance: METHOXY POLYETHYLENE GLYCOL-EPOETIN BETA
     Route: 042
     Dates: start: 20130812, end: 20130826
  6. NESP [Concomitant]
     Active Substance: DARBEPOETIN ALFA
     Route: 065
     Dates: start: 20121217, end: 20130121
  7. NESP [Concomitant]
     Active Substance: DARBEPOETIN ALFA
     Route: 065
     Dates: start: 20130930
  8. MIRCERA [Suspect]
     Active Substance: METHOXY POLYETHYLENE GLYCOL-EPOETIN BETA
     Indication: NEPHROGENIC ANAEMIA
     Route: 042
     Dates: start: 20120625
  9. LANSOPRAZOLE. [Concomitant]
     Active Substance: LANSOPRAZOLE
     Route: 048
  10. FESIN [Concomitant]
     Active Substance: IRON SUCROSE
     Route: 065
     Dates: start: 20130520, end: 20130722
  11. PHOSBLOCK [Concomitant]
     Active Substance: FERRIC HYDROXIDE
     Route: 048
  12. NESP [Concomitant]
     Active Substance: DARBEPOETIN ALFA
     Route: 065
     Dates: start: 20121114, end: 20121203
  13. EPOGIN S [Concomitant]
     Active Substance: ERYTHROPOIETIN
     Route: 065
     Dates: start: 20130911
  14. FEBURIC [Concomitant]
     Active Substance: FEBUXOSTAT
     Route: 048
  15. REGPARA [Concomitant]
     Active Substance: CINACALCET HYDROCHLORIDE
     Indication: HYPERPARATHYROIDISM
     Route: 048
  16. EPOGIN S [Concomitant]
     Active Substance: ERYTHROPOIETIN
     Indication: NEPHROGENIC ANAEMIA
     Route: 065
     Dates: start: 20130125, end: 20130805
  17. EPOGIN S [Concomitant]
     Active Substance: ERYTHROPOIETIN
     Dates: start: 201308

REACTIONS (5)
  - Gastric polyps [Unknown]
  - Haemoglobin decreased [Recovering/Resolving]
  - Anaemia [Recovering/Resolving]
  - Hiatus hernia [Unknown]
  - Aplasia pure red cell [Recovered/Resolved]

NARRATIVE: CASE EVENT DATE: 20130909
